FAERS Safety Report 25946857 (Version 1)
Quarter: 2025Q4

REPORT INFORMATION
  Report Type: Spontaneous
  Country: US (occurrence: US)
  Receive Date: 20251022
  Receipt Date: 20251022
  Transmission Date: 20260118
  Serious: No
  Sender: PHARMACOSMOS A/S
  Company Number: US-NEBO-708571

PATIENT
  Sex: Female

DRUGS (1)
  1. MONOFERRIC [Suspect]
     Active Substance: FERRIC DERISOMALTOSE
     Indication: Product used for unknown indication
     Dates: start: 20250915, end: 20250915

REACTIONS (7)
  - Pruritus [Unknown]
  - Erythema [Unknown]
  - Rash [Unknown]
  - Nausea [Unknown]
  - Hypoaesthesia [Unknown]
  - Hypoaesthesia oral [Unknown]
  - Eructation [Unknown]

NARRATIVE: CASE EVENT DATE: 20250915
